FAERS Safety Report 24352816 (Version 1)
Quarter: 2024Q3

REPORT INFORMATION
  Report Type: Other
  Country: GT (occurrence: GT)
  Receive Date: 20240923
  Receipt Date: 20240923
  Transmission Date: 20241017
  Serious: No
  Sender: TOLMAR
  Company Number: GT-TOLMAR, INC.-24GT052318

PATIENT
  Age: 74 Year
  Sex: Male

DRUGS (12)
  1. ELIGARD [Suspect]
     Active Substance: LEUPROLIDE ACETATE
     Indication: Prostate cancer
     Dosage: 45 MILLIGRAM, Q 6 MONTH
     Route: 058
     Dates: start: 20240207
  2. ELIGARD [Suspect]
     Active Substance: LEUPROLIDE ACETATE
     Dosage: 45 MILLIGRAM, Q 6 MONTH
     Route: 058
     Dates: start: 20240807
  3. ELIGARD [Suspect]
     Active Substance: LEUPROLIDE ACETATE
     Indication: Prostate cancer
     Dosage: UNK
  4. METFORMIN [Concomitant]
     Active Substance: METFORMIN HYDROCHLORIDE
     Indication: Diabetes mellitus
     Dosage: 850 UNK, EVENING
  5. INSULIN NOS [Concomitant]
     Active Substance: INSULIN NOS
     Indication: Diabetes mellitus
     Dosage: 30 INTERNATIONAL UNIT
  6. TEOPRIN [Concomitant]
     Indication: Prostate cancer
     Dosage: 50 MILLIGRAM, QD
  7. DESKETOPROFENO [Concomitant]
     Indication: Chest pain
     Dosage: 2 DOSAGE FORM
  8. DESKETOPROFENO [Concomitant]
     Indication: Chest pain
     Dosage: 15 MILLIGRAM, PRN
  9. RANEXA [Concomitant]
     Active Substance: RANOLAZINE
     Indication: Myocardial infarction
     Dosage: 500 MILLIGRAM, BID
  10. CLOPIDOGREL [Concomitant]
     Active Substance: CLOPIDOGREL BISULFATE
     Indication: Infarction
     Dosage: 75 MILLIGRAM, EVENING
  11. ATENOLOL [Concomitant]
     Active Substance: ATENOLOL
     Indication: Infarction
     Dosage: 50 MILLIGRAM, MORNING
  12. IRBESARTAN [Concomitant]
     Active Substance: IRBESARTAN
     Indication: Blood pressure increased
     Dosage: 1 DOSAGE FORM, MORNING

REACTIONS (3)
  - Psychiatric symptom [Not Recovered/Not Resolved]
  - Hot flush [Recovering/Resolving]
  - Night sweats [Recovering/Resolving]

NARRATIVE: CASE EVENT DATE: 20240201
